FAERS Safety Report 23527612 (Version 1)
Quarter: 2024Q1

REPORT INFORMATION
  Report Type: Spontaneous
  Country: IN (occurrence: IN)
  Receive Date: 20240215
  Receipt Date: 20240215
  Transmission Date: 20240409
  Serious: Yes (Hospitalization)
  Sender: FDA-Public Use
  Company Number: IN-PFIZER INC-PV202300184879

PATIENT
  Age: 55 Year
  Sex: Female

DRUGS (5)
  1. PALBOCICLIB [Suspect]
     Active Substance: PALBOCICLIB
     Indication: Breast cancer
     Dosage: 125 MG, 1X/DAY, D1-D21 1 WEEK OFF
     Route: 048
  2. FULVESTRANT [Concomitant]
     Active Substance: FULVESTRANT
     Dosage: 250 MG, 2X/DAY
     Route: 030
  3. FULVESTRANT [Concomitant]
     Active Substance: FULVESTRANT
     Dosage: 500 MG, 4X WEEKLY
     Route: 030
  4. OSTEOMET [Concomitant]
     Dosage: OVER 20 MIN
  5. CALGROW [Concomitant]
     Dosage: UNK UNK, 1X/DAY
     Route: 048

REACTIONS (3)
  - Bone pain [Unknown]
  - Heart rate increased [Not Recovered/Not Resolved]
  - Weight increased [Unknown]
